FAERS Safety Report 20686556 (Version 1)
Quarter: 2022Q2

REPORT INFORMATION
  Report Type: Spontaneous
  Country: US (occurrence: US)
  Receive Date: 20220407
  Receipt Date: 20220407
  Transmission Date: 20220721
  Serious: No
  Sender: FDA-Public Use
  Company Number: US-SA-SAC20220401000547

PATIENT
  Age: 34 Year
  Sex: Female
  Weight: 58.97 kg

DRUGS (11)
  1. UNISOM SLEEPTABS [Suspect]
     Active Substance: DOXYLAMINE SUCCINATE
     Indication: Insomnia
     Dosage: 25 MG: 80 COUNT
  2. PREDNISONE [Suspect]
     Active Substance: PREDNISONE
     Dosage: 40 MG FOR 5 DAYS
  3. PREDNISONE [Suspect]
     Active Substance: PREDNISONE
     Dosage: 30 MG FOR 5 DAYS
  4. PREDNISONE [Suspect]
     Active Substance: PREDNISONE
     Dosage: 20 MG FOR 5 DAYS
  5. PREDNISONE [Suspect]
     Active Substance: PREDNISONE
     Dosage: 10 MG FOR 5 DAYS FOR 3 WEEKS
  6. COVID-19 VACCINE NOS [Suspect]
     Active Substance: COVID-19 VACCINE NOS
     Indication: Immunisation
     Dosage: UNK
     Dates: start: 20210714
  7. CYMBALTA [Suspect]
     Active Substance: DULOXETINE HYDROCHLORIDE
     Dosage: UNK
  8. MELATONIN [Suspect]
     Active Substance: MELATONIN
     Dosage: UNK
  9. TYLENOL 8HR [Suspect]
     Active Substance: ACETAMINOPHEN
     Dosage: 500 MG: 150 COUNT
  10. TYLENOL 8HR [Suspect]
     Active Substance: ACETAMINOPHEN
     Dosage: 300 MG: 150 COUNT
  11. GABAPENTIN [Concomitant]
     Active Substance: GABAPENTIN
     Dosage: 300 MG: 90 COUNT

REACTIONS (13)
  - Anxiety [Not Recovered/Not Resolved]
  - Insomnia [Not Recovered/Not Resolved]
  - Depression [Not Recovered/Not Resolved]
  - Muscle spasms [Not Recovered/Not Resolved]
  - Muscle twitching [Not Recovered/Not Resolved]
  - Feeling abnormal [Unknown]
  - Asthenia [Unknown]
  - Sensory disturbance [Recovering/Resolving]
  - Paraesthesia [Recovering/Resolving]
  - Pain [Recovering/Resolving]
  - Sensory disturbance [Not Recovered/Not Resolved]
  - Pain [Not Recovered/Not Resolved]
  - Fatigue [Not Recovered/Not Resolved]

NARRATIVE: CASE EVENT DATE: 20210805
